FAERS Safety Report 7263150-0 (Version None)
Quarter: 2011Q1

REPORT INFORMATION
  Report Type: 
  Country: None (occurrence: None)
  Receive Date: 20110130
  Receipt Date: 20101022
  Transmission Date: 20110831
  Serious: No
  Sender: FDA-Public Use
  Company Number: US-ABBOTT-10P-163-0680385-00

PATIENT
  Sex: Female
  Weight: 113.5 kg

DRUGS (5)
  1. HUMIRA [Suspect]
     Indication: CROHN'S DISEASE
     Dates: start: 20080101, end: 20090101
  2. UNKNOWN GERD MEDICATION [Concomitant]
     Indication: GASTROOESOPHAGEAL REFLUX DISEASE
  3. UNKNOWN THYROID MEDICATION [Concomitant]
     Indication: THYROID DISORDER
  4. HUMIRA [Suspect]
     Dates: start: 20090101
  5. UNKNOWN ANTIDEPRESSANT [Concomitant]
     Indication: DEPRESSION

REACTIONS (2)
  - INJECTION SITE PAIN [None]
  - DRUG INEFFECTIVE [None]
